FAERS Safety Report 25193174 (Version 1)
Quarter: 2025Q2

REPORT INFORMATION
  Report Type: Spontaneous
  Country: US (occurrence: US)
  Receive Date: 20250414
  Receipt Date: 20250414
  Transmission Date: 20250717
  Serious: No
  Sender: ELI LILLY AND CO
  Company Number: US-ELI_LILLY_AND_COMPANY-US202504004966

PATIENT

DRUGS (3)
  1. TIRZEPATIDE [Suspect]
     Active Substance: TIRZEPATIDE
     Indication: Weight control
     Route: 065
     Dates: start: 202502
  2. TIRZEPATIDE [Suspect]
     Active Substance: TIRZEPATIDE
     Route: 065
  3. TIRZEPATIDE [Suspect]
     Active Substance: TIRZEPATIDE
     Route: 065

REACTIONS (2)
  - Illness [Recovered/Resolved]
  - Product tampering [Unknown]
